FAERS Safety Report 9687902 (Version 1)
Quarter: 2013Q4

REPORT INFORMATION
  Report Type: Spontaneous
  Country: US (occurrence: US)
  Receive Date: 20131114
  Receipt Date: 20131114
  Transmission Date: 20140711
  Serious: No
  Sender: FDA-Public Use
  Company Number: US-PFIZER INC-2013322504

PATIENT
  Age: 59 Year
  Sex: Female
  Weight: 78.46 kg

DRUGS (6)
  1. XELJANZ [Suspect]
     Indication: RHEUMATOID ARTHRITIS
     Dosage: 5 MG, DAILY
     Route: 048
     Dates: start: 20130901
  2. CENTRUM MULTIVITAMIN [Concomitant]
     Dosage: UNK
  3. FLAXSEED [Concomitant]
     Dosage: UNK
  4. CO-Q-10 [Concomitant]
     Dosage: UNK
  5. CALCIUM [Concomitant]
     Dosage: UNK
  6. FOLIC ACID [Concomitant]
     Dosage: UNK

REACTIONS (1)
  - Fatigue [Unknown]
